FAERS Safety Report 5308631-1 (Version None)
Quarter: 2007Q2

REPORT INFORMATION
  Report Type: 
  Country: None (occurrence: None)
  Receive Date: 20070426
  Receipt Date: 20070423
  Transmission Date: 20071010
  Serious: Yes (Death)
  Sender: FDA-Public Use
  Company Number: CN-AVENTIS-200713533GDDC

PATIENT
  Age: 57 Year
  Sex: Male
  Weight: 60 kg

DRUGS (3)
  1. TAXOTERE [Suspect]
     Indication: NON-SMALL CELL LUNG CANCER
     Route: 041
     Dates: start: 20070401, end: 20070401
  2. TROPISETRON HYDROCHLORIDE [Concomitant]
     Indication: NON-SMALL CELL LUNG CANCER
     Route: 042
     Dates: start: 20070401, end: 20070401
  3. METHYLPREDNISOLONE 16MG TAB [Concomitant]
     Indication: NON-SMALL CELL LUNG CANCER
     Route: 042
     Dates: start: 20070331, end: 20070401

REACTIONS (7)
  - ARRHYTHMIA [None]
  - ASTHENIA [None]
  - CHEST DISCOMFORT [None]
  - NAUSEA [None]
  - PALPITATIONS [None]
  - SHOCK [None]
  - VOMITING [None]
